FAERS Safety Report 5025288-8 (Version None)
Quarter: 2006Q2

REPORT INFORMATION
  Report Type: 
  Country: None (occurrence: None)
  Receive Date: 20060607
  Receipt Date: 20060519
  Transmission Date: 20061013
  Serious: Yes (Hospitalization)
  Sender: FDA-Public Use
  Company Number: US200605004615

PATIENT
  Age: 44 Year
  Sex: Male

DRUGS (4)
  1. FORTEO [Suspect]
     Indication: OSTEOPOROSIS
     Dates: start: 20050801
  2. FORTEO [Concomitant]
  3. FOSAMAX [Concomitant]
  4. CALCIUM GLUCONATE [Concomitant]

REACTIONS (8)
  - COAGULOPATHY [None]
  - CONTUSION [None]
  - FALL [None]
  - FATIGUE [None]
  - HAEMOGLOBIN DECREASED [None]
  - MOUTH HAEMORRHAGE [None]
  - PHARMACEUTICAL PRODUCT COMPLAINT [None]
  - RECTAL HAEMORRHAGE [None]
